FAERS Safety Report 6062416-X (Version None)
Quarter: 2009Q1

REPORT INFORMATION
  Report Type: 
  Country: None (occurrence: None)
  Receive Date: 20090203
  Receipt Date: 20090126
  Transmission Date: 20090719
  Serious: Yes (Hospitalization)
  Sender: FDA-Public Use
  Company Number: US-BIOGENIDEC-2009BI002605

PATIENT
  Age: 55 Year
  Sex: Female
  Weight: 58 kg

DRUGS (2)
  1. AVONEX [Suspect]
     Indication: MULTIPLE SCLEROSIS
     Route: 030
     Dates: start: 20040101, end: 20040101
  2. AVONEX [Suspect]
     Route: 030
     Dates: start: 20040913, end: 20071101

REACTIONS (7)
  - FALL [None]
  - FUNGAL INFECTION [None]
  - INFLUENZA LIKE ILLNESS [None]
  - LUNG NEOPLASM MALIGNANT [None]
  - PNEUMONIA [None]
  - STAPHYLOCOCCAL INFECTION [None]
  - WEIGHT BEARING DIFFICULTY [None]
